FAERS Safety Report 8797141 (Version 1)
Quarter: 2012Q4

REPORT INFORMATION
  Report Type: 
  Country: US (occurrence: US)
  Receive Date: 20120919
  Receipt Date: 20120919
  Transmission Date: 20130627
  Serious: No
  Sender: FDA-Public Use
  Company Number: US-ASTRAZENECA-2012SE71943

PATIENT
  Age: 42 Year
  Sex: Male

DRUGS (2)
  1. SYMBICORT PMDI [Suspect]
     Dosage: 2 PUFFS A DAY
     Route: 055
  2. SYMBICORT PMDI [Suspect]
     Dosage: 1 PUFF A DAY
     Route: 055

REACTIONS (4)
  - Dyspnoea [Unknown]
  - Asthenia [Unknown]
  - Drug dose omission [Unknown]
  - Off label use [Unknown]
